FAERS Safety Report 9888441 (Version 1)
Quarter: 2014Q1

REPORT INFORMATION
  Report Type: Spontaneous
  Country: CL (occurrence: CL)
  Receive Date: 20140211
  Receipt Date: 20140211
  Transmission Date: 20141002
  Serious: Yes (Other)
  Sender: FDA-Public Use
  Company Number: CL-PFIZER INC-2014034331

PATIENT
  Age: 89 Year
  Sex: Female

DRUGS (5)
  1. XALACOM [Suspect]
     Indication: GLAUCOMA
     Dosage: 1 DROP, 1X/DAY
     Route: 047
     Dates: start: 2010
  2. LYRICA [Suspect]
     Dosage: 1 DF EVERY 3 HOURS
     Route: 048
     Dates: start: 2010
  3. METFORMIN [Concomitant]
  4. INSULIN [Concomitant]
  5. TRAMAL [Concomitant]

REACTIONS (3)
  - Cataract [Unknown]
  - Osteoarthritis [Recovering/Resolving]
  - Herpes virus infection [Not Recovered/Not Resolved]
